FAERS Safety Report 6938930-9 (Version None)
Quarter: 2010Q3

REPORT INFORMATION
  Report Type: 
  Country: None (occurrence: None)
  Receive Date: 20100824
  Receipt Date: 20100816
  Transmission Date: 20110219
  Serious: Yes (Hospitalization)
  Sender: FDA-Public Use
  Company Number: B0671280A

PATIENT
  Sex: Male

DRUGS (1)
  1. ZENTEL [Suspect]
     Indication: PRODUCT USED FOR UNKNOWN INDICATION
     Dosage: 2TAB PER DAY
     Route: 065
     Dates: start: 20100813, end: 20100813

REACTIONS (6)
  - DRUG HYPERSENSITIVITY [None]
  - ERYTHEMA [None]
  - PRURITUS [None]
  - RASH [None]
  - SWELLING [None]
  - URTICARIA [None]
